FAERS Safety Report 7176803-X (Version None)
Quarter: 2010Q4

REPORT INFORMATION
  Report Type: 
  Country: None (occurrence: None)
  Receive Date: 20101220
  Receipt Date: 20101210
  Transmission Date: 20110411
  Serious: No
  Sender: FDA-Public Use
  Company Number: DE-JNJFOC-20101104106

PATIENT
  Age: 70 Year
  Sex: Female

DRUGS (1)
  1. DURAGESIC-100 [Suspect]
     Indication: ILL-DEFINED DISORDER
     Route: 062

REACTIONS (4)
  - CHEST DISCOMFORT [None]
  - DRUG EFFECT INCREASED [None]
  - HYPERTENSION [None]
  - WRONG TECHNIQUE IN DRUG USAGE PROCESS [None]
